FAERS Safety Report 25100720 (Version 3)
Quarter: 2025Q2

REPORT INFORMATION
  Report Type: Spontaneous
  Country: US (occurrence: US)
  Receive Date: 20250320
  Receipt Date: 20250417
  Transmission Date: 20250716
  Serious: No
  Sender: UNITED THERAPEUTICS
  Company Number: US-UNITED THERAPEUTICS-UNT-2025-008309

PATIENT
  Sex: Female

DRUGS (1)
  1. REMODULIN [Suspect]
     Active Substance: TREPROSTINIL
     Indication: Pulmonary arterial hypertension

REACTIONS (20)
  - Infusion site pain [Unknown]
  - Infusion site reaction [Unknown]
  - Illness [Unknown]
  - Drug tolerance decreased [Unknown]
  - Device issue [Unknown]
  - Device occlusion [Unknown]
  - Device alarm issue [Unknown]
  - Patient dissatisfaction with device [Unknown]
  - Device wireless communication issue [Unknown]
  - Device occlusion [Unknown]
  - Device issue [Unknown]
  - Device issue [Unknown]
  - Device alarm issue [Unknown]
  - Device wireless communication issue [Unknown]
  - Device use issue [Unknown]
  - Device adhesion issue [Unknown]
  - Device dislocation [Unknown]
  - Device wireless communication issue [Recovered/Resolved]
  - Device wireless communication issue [Recovered/Resolved]
  - Unintentional medical device removal [Recovered/Resolved]

NARRATIVE: CASE EVENT DATE: 20241203
